FAERS Safety Report 24857367 (Version 1)
Quarter: 2025Q1

REPORT INFORMATION
  Report Type: Spontaneous
  Country: US (occurrence: US)
  Receive Date: 20250117
  Receipt Date: 20250117
  Transmission Date: 20250409
  Serious: Yes (Other)
  Sender: TEVA
  Company Number: US-TEVA-VS-3285743

PATIENT
  Age: 77 Year
  Sex: Male
  Weight: 92.99 kg

DRUGS (2)
  1. AUSTEDO [Suspect]
     Active Substance: DEUTETRABENAZINE
     Indication: Chorea
     Route: 065
  2. AUSTEDO [Suspect]
     Active Substance: DEUTETRABENAZINE
     Indication: Chorea
     Route: 065

REACTIONS (3)
  - Hypertension [Unknown]
  - Product prescribing issue [Unknown]
  - Product use in unapproved indication [Unknown]
